FAERS Safety Report 10459827 (Version 1)
Quarter: 2014Q3

REPORT INFORMATION
  Report Type: Spontaneous
  Country: US (occurrence: US)
  Receive Date: 20140917
  Receipt Date: 20140917
  Transmission Date: 20150326
  Serious: No
  Sender: FDA-Public Use
  Company Number: US-009507513-1409USA004210

PATIENT
  Age: 30 Year
  Sex: Male

DRUGS (3)
  1. ABACAVIR [Concomitant]
     Active Substance: ABACAVIR
  2. LAMIVUDINE. [Concomitant]
     Active Substance: LAMIVUDINE
  3. ISENTRESS [Suspect]
     Active Substance: RALTEGRAVIR POTASSIUM
     Indication: HIV INFECTION
     Dosage: 400 MG, TWICE PER DAY
     Route: 048
     Dates: start: 20140822

REACTIONS (2)
  - Pre-existing condition improved [Unknown]
  - Mucosal inflammation [Not Recovered/Not Resolved]

NARRATIVE: CASE EVENT DATE: 2014
